FAERS Safety Report 4482371-3 (Version None)
Quarter: 2004Q4

REPORT INFORMATION
  Report Type: 
  Country: None (occurrence: None)
  Receive Date: 20041022
  Receipt Date: 20030911
  Transmission Date: 20050328
  Serious: No
  Sender: FDA-Public Use
  Company Number: US-BRISTOL-MYERS SQUIBB COMPANY-12381273

PATIENT
  Age: 77 Year
  Sex: Male
  Weight: 82 kg

DRUGS (7)
  1. BUSPAR [Suspect]
     Indication: BRUXISM
     Dosage: STARTED 10MG TID;INCREASED TO 15MG TID FOR ^SHORT TIME^;THEN DECREASED BACK TO 10MG TID.
     Route: 048
     Dates: start: 20030605
  2. ZYPREXA [Concomitant]
  3. DEPAKOTE [Concomitant]
  4. COUMADIN [Concomitant]
  5. GLUCOPHAGE [Concomitant]
  6. BLOOD PRESSURE MEDICATION [Concomitant]
  7. TRIGLYCERIDES, MEDIUM CHAIN [Concomitant]

REACTIONS (2)
  - ANXIETY [None]
  - INTENTIONAL SELF-INJURY [None]
